FAERS Safety Report 22001037 (Version 4)
Quarter: 2023Q2

REPORT INFORMATION
  Report Type: Spontaneous
  Country: US (occurrence: US)
  Receive Date: 20230216
  Receipt Date: 20230628
  Transmission Date: 20230722
  Serious: Yes (Other)
  Sender: FDA-Public Use
  Company Number: US-BAYER-2023P010108

PATIENT
  Age: 15 Year
  Sex: Male

DRUGS (3)
  1. JIVI [Suspect]
     Active Substance: DAMOCTOCOG ALFA PEGOL
     Dosage: UNK (3000 OR 4000U - +/- 10%), 3-4 TIMES A WEEK
     Route: 042
  2. JIVI [Suspect]
     Active Substance: DAMOCTOCOG ALFA PEGOL
     Dosage: 1 DF, TO TREAT BLEED ON RIGHT HAND ON TOP OF THUMB
  3. JIVI [Suspect]
     Active Substance: DAMOCTOCOG ALFA PEGOL
     Dosage: 3000 UNITS (+/.-10%) THREE TIMES PER WEEK TO TREAT LEFT KNEE TARGET JOINT BLEED

REACTIONS (5)
  - Haemorrhage [Recovered/Resolved]
  - Haemorrhage [Recovered/Resolved]
  - Epistaxis [None]
  - Haemarthrosis [Recovered/Resolved]
  - Contusion [Recovered/Resolved]

NARRATIVE: CASE EVENT DATE: 20230128
